FAERS Safety Report 8947340 (Version 1)
Quarter: 2012Q4

REPORT INFORMATION
  Report Type: 
  Country: NL (occurrence: NL)
  Receive Date: 20121205
  Receipt Date: 20121205
  Transmission Date: 20130627
  Serious: Yes (Hospitalization)
  Sender: FDA-Public Use
  Company Number: NL-ASTRAZENECA-2012SE90435

PATIENT
  Age: 77 Year
  Sex: Male
  Weight: 61 kg

DRUGS (13)
  1. CASODEX [Suspect]
     Indication: PROSTATE CANCER
     Route: 048
     Dates: start: 2010, end: 20121123
  2. COLEX KLYSMA [Concomitant]
     Route: 054
  3. DURATEARS [Concomitant]
     Route: 047
  4. DURATEARS Z [Concomitant]
     Route: 047
  5. MADOPAR [Concomitant]
     Route: 048
  6. RIVASTIGMINE [Concomitant]
     Route: 048
  7. EXELON [Concomitant]
     Route: 062
  8. FUCITHALMIC [Concomitant]
     Route: 047
  9. MOVICOLON [Concomitant]
     Route: 048
  10. TRANXENE [Concomitant]
     Route: 030
  11. LUCRIN [Concomitant]
     Route: 058
  12. CLOZAPINE [Concomitant]
     Route: 048
  13. CALCI CHEW D3 [Concomitant]
     Dosage: 500 mg/800ie, 1 df daily
     Route: 048

REACTIONS (5)
  - Vomiting [Recovered/Resolved]
  - Mobility decreased [Unknown]
  - Hypophagia [Unknown]
  - Anaemia [Not Recovered/Not Resolved]
  - Nausea [Recovered/Resolved]
